FAERS Safety Report 5210323-4 (Version None)
Quarter: 2007Q1

REPORT INFORMATION
  Report Type: 
  Country: None (occurrence: None)
  Receive Date: 20070111
  Receipt Date: 20070102
  Transmission Date: 20070707
  Serious: Yes (Hospitalization)
  Sender: FDA-Public Use
  Company Number: 2007-152467-NL

PATIENT
  Age: 24 Year
  Sex: Female

DRUGS (1)
  1. MIRTAZAPINE [Suspect]
     Indication: DEPRESSION
     Dosage: 30 MG QD
     Route: 048
     Dates: start: 20060706, end: 20060808

REACTIONS (3)
  - HYPERGLYCAEMIA [None]
  - INSULIN RESISTANCE [None]
  - WEIGHT INCREASED [None]
